FAERS Safety Report 6327892-3 (Version None)
Quarter: 2009Q3

REPORT INFORMATION
  Report Type: 
  Country: None (occurrence: None)
  Receive Date: 20090825
  Receipt Date: 20080905
  Transmission Date: 20100115
  Serious: No
  Sender: FDA-Public Use
  Company Number: US-ABBOTT-08P-163-0458757-00

PATIENT
  Sex: Female
  Weight: 65.83 kg

DRUGS (8)
  1. SYNTHROID [Suspect]
     Indication: HYPOTHYROIDISM
     Dosage: 25 MCG TABLETS, 1/2 EVERY DAY
     Dates: start: 20080614, end: 20080616
  2. SYNTHROID [Suspect]
     Dates: start: 20080617, end: 20080705
  3. SYNTHROID [Suspect]
     Dates: start: 20080706
  4. SYNTHROID [Suspect]
     Dates: end: 20080902
  5. SYNTHROID [Suspect]
     Dates: start: 20080903
  6. TRANYLCYPROMINE SULFATE [Concomitant]
     Indication: DEPRESSION
     Dosage: USES ON AND OFF
  7. CHLORPHENIRAMINE MALEATE [Concomitant]
     Indication: ANTIALLERGIC THERAPY
     Dosage: 2 2 MG
  8. DIAZEPAM [Concomitant]
     Indication: AGITATION

REACTIONS (6)
  - AGITATION [None]
  - BLOOD THYROID STIMULATING HORMONE INCREASED [None]
  - HOT FLUSH [None]
  - OROPHARYNGEAL DISCOMFORT [None]
  - PRURITUS [None]
  - URTICARIA [None]
